FAERS Safety Report 23295845 (Version 1)
Quarter: 2023Q4

REPORT INFORMATION
  Report Type: Spontaneous
  Country: FR (occurrence: FR)
  Receive Date: 20231214
  Receipt Date: 20231214
  Transmission Date: 20240109
  Serious: Yes (Hospitalization, Congenital Anomaly)
  Sender: FDA-Public Use
  Company Number: FR-EMA-DD-20181101-jain_h1-122121

PATIENT
  Age: 86 Year
  Sex: Female

DRUGS (21)
  1. ARIXTRA [Suspect]
     Active Substance: FONDAPARINUX SODIUM
     Indication: Product used for unknown indication
     Dosage: UNK
     Route: 065
     Dates: start: 20120704, end: 20120717
  2. AUGMENTIN [Suspect]
     Active Substance: AMOXICILLIN\CLAVULANATE POTASSIUM
     Indication: Product used for unknown indication
     Dosage: UNK
     Route: 065
     Dates: start: 20120713, end: 20120713
  3. AUGMENTIN [Suspect]
     Active Substance: AMOXICILLIN\CLAVULANATE POTASSIUM
     Dosage: UNK
     Route: 065
     Dates: start: 20120718, end: 20120719
  4. CIPROFLOXACIN [Suspect]
     Active Substance: CIPROFLOXACIN
     Indication: Product used for unknown indication
     Dosage: UNK
     Route: 065
     Dates: start: 20120713, end: 20120723
  5. IMOVANE [Suspect]
     Active Substance: ZOPICLONE
     Indication: Product used for unknown indication
     Dosage: UNK
     Route: 048
     Dates: start: 20120704
  6. LOVENOX [Suspect]
     Active Substance: ENOXAPARIN SODIUM
     Indication: Product used for unknown indication
     Dosage: UNK
     Route: 065
     Dates: start: 20120628, end: 20120704
  7. LOVENOX [Suspect]
     Active Substance: ENOXAPARIN SODIUM
     Dosage: UNK
     Route: 065
     Dates: start: 20120717, end: 20120723
  8. RABEPRAZOLE SODIUM [Suspect]
     Active Substance: RABEPRAZOLE SODIUM
     Indication: Product used for unknown indication
     Dosage: UNK
     Route: 065
     Dates: start: 20120710
  9. BETADINE [Concomitant]
     Active Substance: POVIDONE-IODINE
     Indication: Wound treatment
     Route: 003
     Dates: start: 201207, end: 20120725
  10. WARFARIN SODIUM [Concomitant]
     Active Substance: WARFARIN SODIUM
     Indication: Product used for unknown indication
     Dosage: 10.000MG
     Route: 048
  11. DAKINS FULL [Concomitant]
     Active Substance: SODIUM HYPOCHLORITE
     Indication: Wound treatment
     Dosage: UNK
     Route: 003
     Dates: start: 20120725, end: 20120725
  12. POTASSIUM CHLORIDE [Concomitant]
     Active Substance: POTASSIUM CHLORIDE
     Indication: Product used for unknown indication
     Dosage: 600 MG,UNK
     Route: 048
  13. DOLIPRANE [Concomitant]
     Active Substance: ACETAMINOPHEN
     Indication: Product used for unknown indication
     Dosage: 500.000MG
     Route: 048
  14. FLECAINIDE [Concomitant]
     Active Substance: FLECAINIDE
     Indication: Product used for unknown indication
     Dosage: UNK
     Route: 065
  15. NADROPARIN CALCIUM [Concomitant]
     Active Substance: NADROPARIN CALCIUM
     Indication: Product used for unknown indication
     Dosage: .7 ML,UNK
     Route: 065
  16. NITROFURANTOIN [Concomitant]
     Active Substance: NITROFURANTOIN
     Indication: Product used for unknown indication
     Dosage: UNK
     Route: 048
     Dates: start: 20120712, end: 20120713
  17. LOPRAZOLAM [Concomitant]
     Active Substance: LOPRAZOLAM
     Indication: Product used for unknown indication
     Dosage: 1.000MG QD
     Route: 048
  18. LEVOTHYROXINE [Concomitant]
     Active Substance: LEVOTHYROXINE
     Indication: Product used for unknown indication
     Dosage: 9.000DROP (1/12 MILLILITRE) QD
     Route: 048
  19. ECONAZOLE NITRATE [Concomitant]
     Active Substance: ECONAZOLE NITRATE
     Indication: Fungal infection
     Dosage: UNK
     Route: 003
     Dates: start: 20120725
  20. SINTROM [Concomitant]
     Active Substance: ACENOCOUMAROL
     Indication: Product used for unknown indication
     Dosage: 2.000MG QD
     Route: 048
     Dates: end: 20120627
  21. CEFUROXIME [Concomitant]
     Active Substance: CEFUROXIME
     Indication: Product used for unknown indication
     Dosage: UNK
     Route: 065
     Dates: start: 20120629, end: 20120704

REACTIONS (5)
  - Erythema [Recovered/Resolved]
  - Drug reaction with eosinophilia and systemic symptoms [Recovered/Resolved with Sequelae]
  - Alopecia [Recovering/Resolving]
  - Oedema [Unknown]
  - Dermatitis exfoliative generalised [Recovered/Resolved]

NARRATIVE: CASE EVENT DATE: 20120725
